FAERS Safety Report 6577034-4 (Version None)
Quarter: 2010Q1

REPORT INFORMATION
  Report Type: 
  Country: None (occurrence: None)
  Receive Date: 20100210
  Receipt Date: 20100203
  Transmission Date: 20100710
  Serious: Yes (Life-Threatening, Hospitalization)
  Sender: FDA-Public Use
  Company Number: JP-BRISTOL-MYERS SQUIBB COMPANY-14554687

PATIENT
  Age: 80 Year
  Sex: Male
  Weight: 55 kg

DRUGS (15)
  1. ERBITUX [Suspect]
     Indication: COLON CANCER
     Dosage: 04NOV08-17FEB09 (105DAYS)(250MG/M2)IV 1 IN 1 WK;RECENT INF = 14TH INF ON 17FEB09;
     Route: 042
     Dates: start: 20081028, end: 20081028
  2. IRINOTECAN HCL [Suspect]
     Indication: COLON CANCER
     Dosage: THERAPY DATES:11NOV08-11NOV08(125MG/M2) 09DEC-09DEC08(100MG/M2) 06JAN-3FEB09(80MG/M2,1IN 2W)(28D)
     Route: 042
     Dates: start: 20081028, end: 20081028
  3. CHLOR-TRIMETON [Concomitant]
     Indication: PREMEDICATION
     Route: 042
     Dates: start: 20081028
  4. DECADRON [Concomitant]
     Indication: PREMEDICATION
     Route: 042
     Dates: start: 20081028
  5. ZANTAC [Concomitant]
     Indication: PREMEDICATION
     Route: 042
     Dates: start: 20081028
  6. SEROTONE [Concomitant]
     Indication: ANTIEMETIC SUPPORTIVE CARE
     Route: 042
     Dates: start: 20081028, end: 20090203
  7. PRIMPERAN TAB [Concomitant]
     Indication: ANTIEMETIC SUPPORTIVE CARE
     Route: 042
     Dates: start: 20081028, end: 20090203
  8. HYPEN [Concomitant]
     Indication: PAIN PROPHYLAXIS
     Dosage: FORM = 200 MG TABS
     Route: 048
  9. HARNAL [Concomitant]
     Indication: DYSURIA
     Dosage: FORM=TABS
     Route: 048
  10. GASTER D [Concomitant]
     Dosage: FORM = 20 MG TABS
     Route: 048
  11. MUCOSTA [Concomitant]
     Dosage: FORM= 100 MG TABS
     Route: 048
  12. JUZEN-TAIHO-TO [Concomitant]
     Indication: PROPHYLAXIS
     Dosage: FORM=GRANULES
     Route: 048
  13. HANGE-SHASHIN-TO [Concomitant]
     Indication: PROPHYLAXIS AGAINST DIARRHOEA
     Dosage: FORM=GRANULES
     Route: 048
     Dates: start: 20081111
  14. SEPAMIT R [Concomitant]
     Indication: BLOOD PRESSURE MANAGEMENT
     Dosage: FORM= 10 MG CAPSULE
     Route: 048
  15. MAGNESIUM SULFATE [Concomitant]
     Indication: HYPOMAGNESAEMIA
     Route: 042
     Dates: start: 20090120, end: 20090311

REACTIONS (1)
  - CEREBRAL HAEMORRHAGE [None]
